FAERS Safety Report 17534710 (Version 1)
Quarter: 2020Q1

REPORT INFORMATION
  Report Type: Spontaneous
  Country: US (occurrence: US)
  Receive Date: 20200312
  Receipt Date: 20200312
  Transmission Date: 20200409
  Serious: Yes (Hospitalization, Other)
  Sender: FDA-Public Use
  Company Number: US-BAYER-2020-038454

PATIENT
  Age: 50 Year
  Sex: Female

DRUGS (1)
  1. MIRENA [Suspect]
     Active Substance: LEVONORGESTREL
     Indication: CONTRACEPTION
     Dosage: 20 ?G PER DAY CONT
     Route: 015
     Dates: start: 20100309, end: 20180710

REACTIONS (7)
  - Idiopathic intracranial hypertension [None]
  - Brain herniation [Recovering/Resolving]
  - Headache [Recovering/Resolving]
  - Cerebrospinal fluid leakage [Recovering/Resolving]
  - Cerebrovascular accident [Recovering/Resolving]
  - Intracranial pressure increased [None]
  - Tinnitus [Recovering/Resolving]

NARRATIVE: CASE EVENT DATE: 201004
